FAERS Safety Report 4340934-X (Version None)
Quarter: 2004Q2

REPORT INFORMATION
  Report Type: 
  Country: None (occurrence: None)
  Receive Date: 20040413
  Receipt Date: 20040401
  Transmission Date: 20050107
  Serious: Yes (Death)
  Sender: FDA-Public Use
  Company Number: 163-20785-04010508

PATIENT
  Age: 78 Year
  Sex: Male

DRUGS (1)
  1. THALOMID [Suspect]
     Indication: RENAL CELL CARCINOMA STAGE UNSPECIFIED
     Dosage: INCREASED BY 50MG TO A MAXIMUM OF 200MG, AT BEDTIME, ORAL
     Route: 048
     Dates: start: 20031103, end: 20031120

REACTIONS (1)
  - MALIGNANT NEOPLASM PROGRESSION [None]
